FAERS Safety Report 6722413-5 (Version None)
Quarter: 2010Q2

REPORT INFORMATION
  Report Type: 
  Country: None (occurrence: None)
  Receive Date: 20100512
  Receipt Date: 20090921
  Transmission Date: 20101027
  Serious: Yes (Hospitalization, Other)
  Sender: FDA-Public Use
  Company Number: US-BAYER-200832916NA

PATIENT
  Age: 56 Year
  Sex: Female

DRUGS (15)
  1. MAGNEVIST [Suspect]
     Indication: NUCLEAR MAGNETIC RESONANCE IMAGING
     Dates: start: 20060822, end: 20060822
  2. METOPROLOL [Concomitant]
     Indication: HYPERTENSION
  3. NORVASC [Concomitant]
     Indication: HYPERTENSION
  4. DEMEDEX [Concomitant]
  5. LANTUS [Concomitant]
  6. NEURONTIN [Concomitant]
  7. RENAGEL [Concomitant]
  8. SODIUM BICARBONATE [Concomitant]
  9. EPOGEN [Concomitant]
     Dosage: WITH DIALYSIS
  10. PREDNISONE [Concomitant]
     Indication: TRANSPLANT
  11. PROGAG [Concomitant]
  12. CELLCEPT [Concomitant]
     Indication: TRANSPLANT
  13. CALCITRIOL [Concomitant]
  14. FOSAMAX [Concomitant]
  15. IRON [Concomitant]

REACTIONS (16)
  - ASTHENIA [None]
  - BLOOD POTASSIUM INCREASED [None]
  - CHILLS [None]
  - DISCOMFORT [None]
  - DIZZINESS [None]
  - HYPERSENSITIVITY [None]
  - HYPOTENSION [None]
  - INFECTION [None]
  - MYALGIA [None]
  - NAUSEA [None]
  - NEUROPATHY PERIPHERAL [None]
  - PAIN [None]
  - PYREXIA [None]
  - VISION BLURRED [None]
  - VOMITING [None]
  - WHITE BLOOD CELL COUNT INCREASED [None]
